FAERS Safety Report 6648184-9 (Version None)
Quarter: 2010Q1

REPORT INFORMATION
  Report Type: 
  Country: None (occurrence: None)
  Receive Date: 20100324
  Receipt Date: 20100314
  Transmission Date: 20100710
  Serious: Yes (Other)
  Sender: FDA-Public Use
  Company Number: CHPA2010DE05362

PATIENT
  Sex: Male

DRUGS (1)
  1. OTRIVEN (NCH) [Suspect]
     Dosage: UNK,UNK

REACTIONS (1)
  - DRUG DEPENDENCE [None]
